FAERS Safety Report 23159069 (Version 7)
Quarter: 2023Q4

REPORT INFORMATION
  Report Type: Spontaneous
  Country: CN (occurrence: CN)
  Receive Date: 20231108
  Receipt Date: 20231212
  Transmission Date: 20240110
  Serious: Yes (Death, Other)
  Sender: FDA-Public Use
  Company Number: CN-DSJP-DSJ-2023-145860

PATIENT
  Age: 34 Year
  Sex: Female
  Weight: 50 kg

DRUGS (1)
  1. ENHERTU [Suspect]
     Active Substance: FAM-TRASTUZUMAB DERUXTECAN-NXKI
     Indication: Hormone receptor negative HER2 positive breast cancer
     Dosage: 200 MG
     Route: 065
     Dates: start: 20231012, end: 20231012

REACTIONS (4)
  - Agranulocytosis [Fatal]
  - Bacterial sepsis [Fatal]
  - Septic shock [Fatal]
  - Infection [Unknown]

NARRATIVE: CASE EVENT DATE: 20231018
